FAERS Safety Report 4536228-X (Version None)
Quarter: 2004Q4

REPORT INFORMATION
  Report Type: 
  Country: None (occurrence: None)
  Receive Date: 20041223
  Receipt Date: 20041215
  Transmission Date: 20050328
  Serious: Yes (Hospitalization)
  Sender: FDA-Public Use
  Company Number: DE-GLAXOSMITHKLINE-D0045476A

PATIENT
  Sex: Female

DRUGS (1)
  1. ZYBAN [Suspect]
     Dosage: 150MG SEE DOSAGE TEXT
     Route: 048
     Dates: start: 20020901

REACTIONS (6)
  - CARDIAC DISORDER [None]
  - DELUSION [None]
  - DYSPNOEA [None]
  - HYPERVENTILATION [None]
  - PANIC ATTACK [None]
  - SUICIDAL IDEATION [None]
